FAERS Safety Report 23716680 (Version 2)
Quarter: 2024Q2

REPORT INFORMATION
  Report Type: Report from Study
  Country: US (occurrence: US)
  Receive Date: 20240408
  Receipt Date: 20240617
  Transmission Date: 20240716
  Serious: No
  Sender: FDA-Public Use
  Company Number: US-ALXN-A202202754

PATIENT
  Age: 70 Year
  Sex: Female

DRUGS (1)
  1. STRENSIQ [Suspect]
     Active Substance: ASFOTASE ALFA
     Indication: Hypophosphatasia
     Dosage: 0.6 MILLIGRAM, SIX TIMES/WEEK
     Route: 058
     Dates: start: 20220218

REACTIONS (19)
  - Skin haemorrhage [Unknown]
  - Dermatitis contact [Recovered/Resolved]
  - Mass [Not Recovered/Not Resolved]
  - Stress [Unknown]
  - Headache [Unknown]
  - Swelling [Unknown]
  - Pruritus [Recovering/Resolving]
  - Erythema [Unknown]
  - Arthropod bite [Unknown]
  - Periarthritis [Unknown]
  - Back pain [Unknown]
  - Dysphonia [Not Recovered/Not Resolved]
  - Tooth disorder [Not Recovered/Not Resolved]
  - Injection site pain [Not Recovered/Not Resolved]
  - Injection site bruising [Unknown]
  - Injection site mass [Recovered/Resolved]
  - Injection site erythema [Unknown]
  - Injection site swelling [Unknown]
  - Pain in extremity [Unknown]

NARRATIVE: CASE EVENT DATE: 20220613
